FAERS Safety Report 5110221-0 (Version None)
Quarter: 2006Q3

REPORT INFORMATION
  Report Type: 
  Country: None (occurrence: None)
  Receive Date: 20060921
  Receipt Date: 20060830
  Transmission Date: 20061208
  Serious: Yes (Disabling)
  Sender: FDA-Public Use
  Company Number: 2006AP04075

PATIENT
  Age: 26720 Day
  Sex: Male
  Weight: 62.4 kg

DRUGS (9)
  1. CASODEX [Suspect]
     Indication: PROSTATE CANCER
     Route: 048
     Dates: start: 20060510, end: 20060830
  2. LEUPLIN SR [Suspect]
     Indication: PROSTATE CANCER
     Route: 058
     Dates: start: 20060510
  3. AMARYL [Concomitant]
     Indication: DIABETES MELLITUS
     Route: 048
  4. GLUCOBAY [Concomitant]
     Indication: DIABETES MELLITUS
     Route: 048
  5. ASPIRIN [Concomitant]
     Indication: MYOCARDIAL INFARCTION
     Route: 048
  6. RANITAC [Concomitant]
     Indication: GASTRIC ULCER
     Route: 048
  7. NU-LOTAN [Concomitant]
     Indication: HYPERTENSION
     Route: 048
  8. HERBESSER R [Concomitant]
     Indication: HYPERTENSION
     Route: 048
  9. LIPITOR [Concomitant]
     Indication: HYPERLIPIDAEMIA
     Route: 048

REACTIONS (4)
  - DIABETES MELLITUS [None]
  - MALAISE [None]
  - TREATMENT NONCOMPLIANCE [None]
  - WEIGHT DECREASED [None]
